FAERS Safety Report 5332362-5 (Version None)
Quarter: 2007Q2

REPORT INFORMATION
  Report Type: 
  Country: None (occurrence: None)
  Receive Date: 20070523
  Receipt Date: 20070522
  Transmission Date: 20071010
  Serious: Yes (Hospitalization)
  Sender: FDA-Public Use
  Company Number: A0652412A

PATIENT
  Age: 64 Year
  Sex: Female

DRUGS (5)
  1. AVANDIA [Suspect]
     Dosage: 4MG PER DAY
     Route: 048
     Dates: start: 19990101, end: 20070522
  2. GLYBURIDE [Concomitant]
  3. ZESTRIL [Concomitant]
  4. HYDROCHLOROTHIAZIDE [Concomitant]
  5. POTASSIUM ACETATE [Concomitant]

REACTIONS (3)
  - JOINT SWELLING [None]
  - MYOCARDIAL INFARCTION [None]
  - WEIGHT LOSS POOR [None]
